FAERS Safety Report 9608729 (Version 1)
Quarter: 2013Q4

REPORT INFORMATION
  Report Type: Spontaneous
  Country: US (occurrence: None)
  Receive Date: 20131007
  Receipt Date: 20131007
  Transmission Date: 20140711
  Serious: Yes (Hospitalization)
  Sender: FDA-Public Use
  Company Number: None

PATIENT
  Age: 62 Year
  Sex: Female
  Weight: 80.45 kg

DRUGS (2)
  1. IFOSFAMIDE [Suspect]
  2. PACLITAXEL [Concomitant]

REACTIONS (5)
  - Abdominal pain [None]
  - Constipation [None]
  - Asthenia [None]
  - Tachycardia [None]
  - Haemoglobin decreased [None]
